FAERS Safety Report 15170447 (Version 1)
Quarter: 2018Q3

REPORT INFORMATION
  Report Type: Spontaneous
  Country: US (occurrence: US)
  Receive Date: 20180622
  Receipt Date: 20180622
  Transmission Date: 20181010
  Serious: Yes (Life-Threatening, Hospitalization)
  Sender: FDA-Public Use
  Company Number: None

PATIENT
  Age: 46 Year
  Sex: Male
  Weight: 96 kg

DRUGS (7)
  1. ACETAMINOPHEN?HYDROCODONEORAL 325?5 MG TABLET 2 TAB PRN PO Q6H [Concomitant]
  2. LEVETIRACETAM 1750 MG PO BID [Concomitant]
  3. METAMUCIL 5.2 GM PO TID [Concomitant]
  4. LAMOTRIGINE. [Suspect]
     Active Substance: LAMOTRIGINE
     Indication: EPILEPSY
     Dates: start: 20180508, end: 20180524
  5. CARBAMAZEPINE 400 MG XR = 2 TABS PO BID [Concomitant]
  6. ALLEGRA 180 MG PO DAILY [Concomitant]
  7. CARBAMAZEPINE 200 MG XR TABLET 5 TABS PO BID [Concomitant]

REACTIONS (7)
  - Histiocytosis haematophagic [None]
  - Splenomegaly [None]
  - Gaze palsy [None]
  - Serum ferritin increased [None]
  - Pyrexia [None]
  - Pancytopenia [None]
  - Rash [None]

NARRATIVE: CASE EVENT DATE: 20180524
